FAERS Safety Report 6424075-3 (Version None)
Quarter: 2009Q4

REPORT INFORMATION
  Report Type: 
  Country: None (occurrence: None)
  Receive Date: 20091102
  Receipt Date: 20091024
  Transmission Date: 20100525
  Serious: Yes (Hospitalization, Other)
  Sender: FDA-Public Use
  Company Number: US-AMGEN-QUU370917

PATIENT
  Sex: Female

DRUGS (3)
  1. EPOGEN [Suspect]
     Indication: ANAEMIA
  2. PEPCID [Concomitant]
  3. NEXIUM [Concomitant]

REACTIONS (2)
  - PLATELET COUNT INCREASED [None]
  - UROSEPSIS [None]
